FAERS Safety Report 14969938 (Version 2)
Quarter: 2018Q3

REPORT INFORMATION
  Report Type: Spontaneous
  Country: FR (occurrence: FR)
  Receive Date: 20180604
  Receipt Date: 20180815
  Transmission Date: 20181010
  Serious: Yes (Hospitalization)
  Sender: FDA-Public Use
  Company Number: FR-TEVA-2018-FR-901761

PATIENT
  Age: 40 Year
  Sex: Female
  Weight: 66 kg

DRUGS (10)
  1. RISPERDAL [Suspect]
     Active Substance: RISPERIDONE
     Dosage: BID
     Route: 048
     Dates: start: 20150731
  2. XEPLION [Suspect]
     Active Substance: PALIPERIDONE PALMITATE
     Route: 030
     Dates: start: 20151006
  3. TERCIAN [Suspect]
     Active Substance: CYAMEMAZINE
     Indication: SCHIZOPHRENIA
     Dosage: 25 MILLIGRAM DAILY;  QD
     Route: 048
     Dates: start: 20150907
  4. RISPERDAL [Suspect]
     Active Substance: RISPERIDONE
     Indication: SCHIZOPHRENIA
     Dosage: QD
     Route: 048
     Dates: end: 20150907
  5. PALIPERIDONE. [Suspect]
     Active Substance: PALIPERIDONE
     Route: 030
     Dates: start: 20151006
  6. ABILIFY [Suspect]
     Active Substance: ARIPIPRAZOLE
     Indication: SCHIZOPHRENIA
     Dosage: DOSAGE FORM: UNKNOWN
     Route: 048
     Dates: start: 20151016
  7. XEPLION [Suspect]
     Active Substance: PALIPERIDONE PALMITATE
     Indication: SCHIZOPHRENIA
     Dosage: 150 UNK, UNK
     Route: 030
     Dates: start: 20150707, end: 20151006
  8. RISPERIDONE. [Suspect]
     Active Substance: RISPERIDONE
     Indication: SCHIZOPHRENIA
     Dosage: 2 MILLIGRAM DAILY;  BID
     Route: 048
     Dates: start: 20150731
  9. RISPERIDONE. [Suspect]
     Active Substance: RISPERIDONE
     Dosage: Q D
     Route: 048
     Dates: start: 20150907
  10. PALIPERIDONE. [Suspect]
     Active Substance: PALIPERIDONE
     Indication: SCHIZOPHRENIA
     Route: 030
     Dates: start: 20150707

REACTIONS (1)
  - Hallucination [Not Recovered/Not Resolved]

NARRATIVE: CASE EVENT DATE: 201507
